FAERS Safety Report 26141040 (Version 1)
Quarter: 2025Q4

REPORT INFORMATION
  Report Type: Spontaneous
  Country: US (occurrence: US)
  Receive Date: 20251210
  Receipt Date: 20251210
  Transmission Date: 20260118
  Serious: No
  Sender: APELLIS PHARMACEUTICALS
  Company Number: US-APELLIS-2025-APL-0002382

PATIENT

DRUGS (2)
  1. EMPAVELI [Suspect]
     Active Substance: PEGCETACOPLAN
     Indication: C3 glomerulopathy
  2. EMPAVELI [Suspect]
     Active Substance: PEGCETACOPLAN
     Indication: Glomerulonephritis

REACTIONS (1)
  - Urine protein/creatinine ratio increased [Unknown]
